FAERS Safety Report 13188752 (Version 1)
Quarter: 2017Q1

REPORT INFORMATION
  Report Type: Report from Study
  Country: US (occurrence: US)
  Receive Date: 20170206
  Receipt Date: 20170206
  Transmission Date: 20170428
  Serious: Yes (Hospitalization)
  Sender: FDA-Public Use
  Company Number: US-PFIZER INC-2017036612

PATIENT
  Age: 67 Year
  Sex: Female
  Weight: 136.9 kg

DRUGS (20)
  1. PALBOCICLIB [Suspect]
     Active Substance: PALBOCICLIB
     Indication: BREAST CANCER METASTATIC
     Dosage: 100 MG, CYCLIC: ONCE DAILY (OD) FOR 21 DAYS
     Route: 048
     Dates: start: 20161021
  2. ALDACTAZIDE [Concomitant]
     Active Substance: HYDROCHLOROTHIAZIDE\SPIRONOLACTONE
     Dosage: HYDROCHLOROTHIAZIDE 25 MG/SPIRONOLACTONE 25 MG
  3. TRIAMCINOLONE ACETONIDE. [Concomitant]
     Active Substance: TRIAMCINOLONE ACETONIDE
     Dosage: 0.5 %, UNK
  4. ASPIRIN (E.C.) [Concomitant]
     Active Substance: ASPIRIN
     Dosage: 81 MG, UNK
  5. COLACE [Concomitant]
     Active Substance: DOCUSATE SODIUM
     Dosage: 100 MG, UNK
  6. EPIPEN [Concomitant]
     Active Substance: EPINEPHRINE
     Dosage: 0.3 MG/0.3 ML (1:1000)
  7. EMLA [Concomitant]
     Active Substance: LIDOCAINE\PRILOCAINE
  8. B6 [Concomitant]
     Active Substance: PYRIDOXINE HYDROCHLORIDE
     Dosage: 100 MG, UNK
  9. CALCIUM 600+D3 [Concomitant]
     Active Substance: CALCIUM CARBONATE\VITAMIN D
     Dosage: 1500 MG (600 MG ELEMENTAL)- 200 UNITS TAB
  10. PRILOSEC [Concomitant]
     Active Substance: OMEPRAZOLE MAGNESIUM
     Dosage: 20 MG, UNK
  11. TYLENOL [Concomitant]
     Active Substance: ACETAMINOPHEN
     Dosage: 325 MG, UNK
  12. TENORMIN [Concomitant]
     Active Substance: ATENOLOL
     Dosage: 25 MG, UNK
  13. KLOR-CON [Concomitant]
     Active Substance: POTASSIUM CHLORIDE
     Dosage: 20 MEQ, PACKET
  14. NORVASC [Concomitant]
     Active Substance: AMLODIPINE BESYLATE
     Dosage: 2.5 MG, UNK
  15. ANTIVERT /00072802/ [Concomitant]
     Dosage: 12.5 MG, UNK
  16. SENOKOT [Concomitant]
     Active Substance: SENNOSIDES
     Dosage: 8.6 MG, UNK
  17. BAZEDOXIFENE ACETATE [Suspect]
     Active Substance: BAZEDOXIFENE ACETATE
     Indication: BREAST CANCER METASTATIC
     Dosage: 40 MG, CYCLIC:ONCE DAILY (OD) FOR 28 DAYS
     Route: 048
     Dates: start: 20161021
  18. CYMBALTA [Concomitant]
     Active Substance: DULOXETINE HYDROCHLORIDE
     Dosage: 30 MG, UNK
  19. DELTASONE [Concomitant]
     Active Substance: PREDNISONE
     Dosage: 1 MG, UNK
  20. KLONOPIN [Concomitant]
     Active Substance: CLONAZEPAM
     Dosage: 0.5 MG, UNK

REACTIONS (2)
  - Pulmonary embolism [Recovered/Resolved]
  - Deep vein thrombosis [Recovered/Resolved]

NARRATIVE: CASE EVENT DATE: 20170124
